FAERS Safety Report 9626389 (Version 3)
Quarter: 2013Q4

REPORT INFORMATION
  Report Type: Spontaneous
  Country: US (occurrence: US)
  Receive Date: 20131016
  Receipt Date: 20131031
  Transmission Date: 20140711
  Serious: Yes (Hospitalization, Other)
  Sender: FDA-Public Use
  Company Number: US-BAXTER-2013BAX039573

PATIENT
  Age: 67 Year
  Sex: Male

DRUGS (2)
  1. DIANEAL LOW CALCIUM [Suspect]
     Indication: PERITONEAL DIALYSIS
     Route: 033
     Dates: start: 2012
  2. EXTRANEAL [Suspect]
     Indication: PERITONEAL DIALYSIS
     Route: 033
     Dates: start: 2012

REACTIONS (6)
  - Device related infection [Unknown]
  - Peritonitis bacterial [Recovering/Resolving]
  - Fungal peritonitis [Recovered/Resolved]
  - Peritoneal dialysis complication [Unknown]
  - Disorientation [Unknown]
  - Peritoneal dialysis complication [Unknown]
